FAERS Safety Report 8064845-1 (Version None)
Quarter: 2012Q1

REPORT INFORMATION
  Report Type: 
  Country: None (occurrence: None)
  Receive Date: 20120124
  Receipt Date: 20120117
  Transmission Date: 20120608
  Serious: No
  Sender: FDA-Public Use
  Company Number: US-BIOGENIDEC-2010BI031027

PATIENT
  Age: 32 Year
  Sex: Female

DRUGS (1)
  1. TYSABRI [Suspect]
     Indication: MULTIPLE SCLEROSIS
     Route: 042
     Dates: start: 20100511

REACTIONS (11)
  - PARAESTHESIA [None]
  - HEADACHE [None]
  - CLUMSINESS [None]
  - NASOPHARYNGITIS [None]
  - ANXIETY [None]
  - TOOTH FRACTURE [None]
  - FALL [None]
  - HAEMATOMA [None]
  - URINARY TRACT INFECTION [None]
  - FORMICATION [None]
  - INFUSION SITE PRURITUS [None]
